FAERS Safety Report 5890054-8 (Version None)
Quarter: 2008Q3

REPORT INFORMATION
  Report Type: 
  Country: None (occurrence: None)
  Receive Date: 20080919
  Receipt Date: 20080909
  Transmission Date: 20090109
  Serious: Yes (Other)
  Sender: FDA-Public Use
  Company Number: FR-PFIZER INC-2008056744

PATIENT
  Sex: Male
  Weight: 73 kg

DRUGS (6)
  1. ZOXAN LP [Suspect]
     Indication: BENIGN PROSTATIC HYPERPLASIA
     Route: 048
     Dates: start: 20071001, end: 20080305
  2. ZOXAN LP [Suspect]
     Indication: PROSTATIC ADENOMA
  3. COTAREG [Suspect]
     Indication: HYPERTENSION
     Dosage: TEXT:160/25
     Route: 048
  4. ASPIRIN [Concomitant]
     Route: 048
     Dates: end: 20080310
  5. SIMVASTATIN [Concomitant]
     Indication: HYPERCHOLESTEROLAEMIA
     Route: 048
  6. DIFFU K [Concomitant]
     Route: 048

REACTIONS (2)
  - ATRIAL FIBRILLATION [None]
  - HYPOTENSION [None]
